FAERS Safety Report 15978138 (Version 2)
Quarter: 2019Q2

REPORT INFORMATION
  Report Type: Spontaneous
  Country: US (occurrence: US)
  Receive Date: 20190218
  Receipt Date: 20190419
  Transmission Date: 20190711
  Serious: Yes (Other)
  Sender: FDA-Public Use
  Company Number: US-HETERO CORPORATE-HET2019US00148

PATIENT
  Sex: Female
  Weight: 63 kg

DRUGS (1)
  1. MONTELUKAST [Suspect]
     Active Substance: MONTELUKAST SODIUM
     Indication: HYPERSENSITIVITY
     Dosage: 10 MG, QD
     Route: 065
     Dates: end: 20190205

REACTIONS (7)
  - Diarrhoea [Recovered/Resolved]
  - Abdominal distension [Recovered/Resolved]
  - Dyspnoea [Recovered/Resolved]
  - Migraine [Recovered/Resolved]
  - Dizziness [Recovered/Resolved]
  - Fatigue [Recovered/Resolved]
  - Rash [Recovered/Resolved]

NARRATIVE: CASE EVENT DATE: 20190205
